FAERS Safety Report 14561641 (Version 1)
Quarter: 2018Q1

REPORT INFORMATION
  Report Type: Spontaneous
  Country: IR (occurrence: IR)
  Receive Date: 20180222
  Receipt Date: 20180222
  Transmission Date: 20180509
  Serious: Yes (Death, Life-Threatening, Hospitalization, Other)
  Sender: FDA-Public Use
  Company Number: IR-LUPIN PHARMACEUTICALS INC.-2018-01089

PATIENT
  Age: 25 Year
  Sex: Male

DRUGS (4)
  1. CALCIUM [Suspect]
     Active Substance: CALCIUM
     Dosage: 0.5 MG/KG/MIN
     Route: 042
  2. CALCIUM [Suspect]
     Active Substance: CALCIUM
     Indication: TOXICITY TO VARIOUS AGENTS
     Dosage: 2 G, UNK
     Route: 065
  3. CALCIUM [Suspect]
     Active Substance: CALCIUM
     Dosage: 0.32 MG/KG, UNK
     Route: 042
  4. AMLODIPINE BESYLATE TABLETS USP, 5 MG [Suspect]
     Active Substance: AMLODIPINE BESYLATE
     Indication: PRODUCT USED FOR UNKNOWN INDICATION
     Dosage: 450 MG, SINGLE (90 TABLETS)
     Route: 048

REACTIONS (16)
  - Depressed level of consciousness [Unknown]
  - Respiratory alkalosis [Unknown]
  - Cardiac dysfunction [Fatal]
  - Nodal rhythm [Unknown]
  - Disorientation [Unknown]
  - Abdominal discomfort [Unknown]
  - Multiple organ dysfunction syndrome [Unknown]
  - Hypercalcaemia [Unknown]
  - Shock [Unknown]
  - Intentional overdose [Unknown]
  - Oxygen saturation decreased [Unknown]
  - Rhabdomyolysis [Unknown]
  - Toxicity to various agents [Unknown]
  - Pulmonary hypertension [Fatal]
  - Pulmonary oedema [Recovered/Resolved]
  - Metabolic acidosis [Unknown]
